FAERS Safety Report 11318881 (Version 6)
Quarter: 2018Q1

REPORT INFORMATION
  Report Type: Spontaneous
  Country: US (occurrence: US)
  Receive Date: 20150729
  Receipt Date: 20180320
  Transmission Date: 20180508
  Serious: No
  Sender: FDA-Public Use
  Company Number: US-ACTELION PHARMACEUTICALS US, INC.-A-NJ2015-118037

PATIENT
  Age: 27 Year
  Sex: Female

DRUGS (8)
  1. REMODULIN [Suspect]
     Active Substance: TREPROSTINIL
     Indication: PRODUCT USED FOR UNKNOWN INDICATION
     Route: 065
  2. OPSUMIT [Suspect]
     Active Substance: MACITENTAN
     Indication: PULMONARY ARTERIAL HYPERTENSION
     Dosage: 10 MG, QD
     Route: 048
     Dates: start: 20140515
  3. SUMATRIPTAN. [Suspect]
     Active Substance: SUMATRIPTAN
     Indication: MIGRAINE
     Dosage: UNK
     Route: 065
     Dates: end: 20180308
  4. TRIAMCINOLONE [Concomitant]
     Active Substance: TRIAMCINOLONE
  5. FLUTICASONE. [Concomitant]
     Active Substance: FLUTICASONE
  6. TRAMADOL. [Concomitant]
     Active Substance: TRAMADOL
  7. ADCIRCA [Concomitant]
     Active Substance: TADALAFIL
  8. BUTALBITAL APAP CAFFEINE [Concomitant]

REACTIONS (10)
  - Pulmonary arterial hypertension [Recovering/Resolving]
  - Condition aggravated [Recovering/Resolving]
  - Headache [Not Recovered/Not Resolved]
  - Flushing [Unknown]
  - Pain in jaw [Not Recovered/Not Resolved]
  - Migraine [Unknown]
  - Dyspnoea exertional [Recovering/Resolving]
  - Vomiting [Recovering/Resolving]
  - Pain in extremity [Not Recovered/Not Resolved]
  - Nausea [Recovering/Resolving]

NARRATIVE: CASE EVENT DATE: 20150508
